FAERS Safety Report 6738982-5 (Version None)
Quarter: 2010Q2

REPORT INFORMATION
  Report Type: 
  Country: None (occurrence: None)
  Receive Date: 20100524
  Receipt Date: 20100524
  Transmission Date: 20101027
  Serious: Yes (Other)
  Sender: FDA-Public Use
  Company Number: None

PATIENT
  Sex: Female
  Weight: 104.3273 kg

DRUGS (1)
  1. LEVETIRACETAM [Suspect]
     Indication: EPILEPSY
     Dosage: 1 TABLET 2 X'S DAILY PO
     Route: 048
     Dates: start: 20090223, end: 20090312

REACTIONS (9)
  - AURA [None]
  - DRUG EFFECT DECREASED [None]
  - HEADACHE [None]
  - IMPAIRED DRIVING ABILITY [None]
  - NO THERAPEUTIC RESPONSE [None]
  - PETIT MAL EPILEPSY [None]
  - PRODUCT FORMULATION ISSUE [None]
  - PRODUCT QUALITY ISSUE [None]
  - STRESS [None]
